FAERS Safety Report 18491874 (Version 8)
Quarter: 2021Q2

REPORT INFORMATION
  Report Type: Spontaneous
  Country: ES (occurrence: ES)
  Receive Date: 20201111
  Receipt Date: 20210629
  Transmission Date: 20210717
  Serious: Yes (Hospitalization, Other)
  Sender: FDA-Public Use
  Company Number: NVSC2020ES300700

PATIENT
  Age: 32 Year
  Sex: Female

DRUGS (8)
  1. HYDROXYCHLOROQUINE [Interacting]
     Active Substance: HYDROXYCHLOROQUINE
     Dosage: 200 MG, BID (200 MG EVERY 12 HOURS (FIRST DAY DOSE CHARGE))
     Route: 065
  2. HYDROXYCHLOROQUINE [Interacting]
     Active Substance: HYDROXYCHLOROQUINE
     Dosage: 400 MG, QD (400 MG LOADING DOSE EVERY 12 HOURS ON THE FIRST DAY)
     Route: 065
  3. HYDROXYCHLOROQUINE [Suspect]
     Active Substance: HYDROXYCHLOROQUINE
     Indication: COVID-19
     Dosage: 800 MG, QD (400 MG, 2X / DAY (EVERY 12 HOURS, LOADING DOSE ON FIRST DAY)
     Route: 065
  4. OMEPRAZOLE. [Suspect]
     Active Substance: OMEPRAZOLE
     Dosage: 80 MG, QD (20 MG, BID (20MG EVERY 12 HOURS))
     Route: 065
  5. CEFDITOREN [Suspect]
     Active Substance: CEFDITOREN
     Indication: COVID-19
     Dosage: 800 MG, BID (400 MG EVERY 12 HOURS)
     Route: 065
  6. OMEPRAZOLE. [Suspect]
     Active Substance: OMEPRAZOLE
     Indication: HIATUS HERNIA
     Dosage: 40 MG, QD (20 MG EVERY 12 HOURS)
     Route: 065
  7. AZITHROMYCIN ANHYDROUS. [Interacting]
     Active Substance: AZITHROMYCIN ANHYDROUS
     Indication: COVID-19
     Dosage: 500 MG, QD (500 MG EVERY 24 HOURS)
     Route: 065
  8. CEFDITOREN [Suspect]
     Active Substance: CEFDITOREN
     Dosage: 400 MG, BID (400 MG BID, (400 MGEVERY 12 HOURS))
     Route: 065

REACTIONS (10)
  - Tachycardia [Recovered/Resolved]
  - Extrasystoles [Recovered/Resolved]
  - Product use in unapproved indication [Unknown]
  - Cardiac failure chronic [Recovered/Resolved]
  - COVID-19 [Unknown]
  - Cardiac failure [Unknown]
  - Dyspnoea exertional [Unknown]
  - Mitral valve incompetence [Unknown]
  - Drug interaction [Unknown]
  - Off label use [Unknown]
